FAERS Safety Report 8448940-0 (Version None)
Quarter: 2012Q2

REPORT INFORMATION
  Report Type: 
  Country: None (occurrence: None)
  Receive Date: 20120619
  Receipt Date: 20120614
  Transmission Date: 20120825
  Serious: Yes (Other)
  Sender: FDA-Public Use
  Company Number: TW-GLAXOSMITHKLINE-B0808674A

PATIENT
  Sex: Male

DRUGS (5)
  1. ROSIGLITAZONE [Suspect]
     Indication: DIABETES MELLITUS
     Dosage: 4MG PER DAY
     Route: 065
  2. NEURONTIN [Concomitant]
  3. NEXIUM [Concomitant]
  4. NOOTROPIL [Concomitant]
  5. MGO [Concomitant]

REACTIONS (1)
  - ADVERSE EVENT [None]
